FAERS Safety Report 9412851 (Version 2)
Quarter: 2013Q3

REPORT INFORMATION
  Report Type: Spontaneous
  Country: GB (occurrence: GB)
  Receive Date: 20130722
  Receipt Date: 20130805
  Transmission Date: 20140515
  Serious: Yes (Other)
  Sender: FDA-Public Use
  Company Number: PHHY2013GB075593

PATIENT
  Age: 70 Year
  Sex: Male

DRUGS (5)
  1. RAMIPRIL [Suspect]
     Indication: PRODUCT USED FOR UNKNOWN INDICATION
     Dosage: 10 MG, QD
     Route: 065
  2. LERCANIDIPINE [Interacting]
     Indication: PRODUCT USED FOR UNKNOWN INDICATION
     Dosage: 20 MG, QD
     Route: 065
  3. COMBODART [Suspect]
     Indication: BENIGN PROSTATIC HYPERPLASIA
     Route: 065
     Dates: start: 201211
  4. SIMVASTATIN [Concomitant]
     Dosage: 40 MG, QD
  5. SIMVASTATIN [Concomitant]
     Dosage: 40MG PER DAY

REACTIONS (11)
  - Electrocardiogram QRS complex prolonged [Recovering/Resolving]
  - Heart rate decreased [Recovering/Resolving]
  - Ventricular extrasystoles [Recovering/Resolving]
  - Atrioventricular dissociation [Recovering/Resolving]
  - Blood pressure systolic increased [Recovering/Resolving]
  - Chest discomfort [Recovering/Resolving]
  - Polyuria [Recovering/Resolving]
  - Tachycardia [Recovering/Resolving]
  - Heart rate increased [Recovering/Resolving]
  - Palpitations [Recovering/Resolving]
  - Drug interaction [Recovering/Resolving]
